FAERS Safety Report 4962222-0 (Version None)
Quarter: 2006Q1

REPORT INFORMATION
  Report Type: 
  Country: None (occurrence: None)
  Receive Date: 20060329
  Receipt Date: 20060320
  Transmission Date: 20060701
  Serious: Yes (Hospitalization, Other)
  Sender: FDA-Public Use
  Company Number: THQ2005A00807

PATIENT
  Age: 70 Year

DRUGS (3)
  1. LEUPROLIDE ACETATE [Suspect]
     Dosage: 22.5 MG (22.5 MG, 1 IN 3 M) INTRAMUSCULAR
     Route: 030
     Dates: start: 20041012, end: 20050110
  2. ZOLEDRONIC ACID [Suspect]
     Dosage: (4.0 MG/100 ML) INTRAVENOUS
     Route: 042
     Dates: start: 20041018, end: 20050818
  3. ATENOLOL [Suspect]
     Indication: HYPERTENSION
     Dosage: (50 MG)
     Dates: end: 20051024

REACTIONS (9)
  - BLOOD PRESSURE INCREASED [None]
  - BONE FRAGMENTATION [None]
  - BRADYCARDIA [None]
  - FALL [None]
  - GINGIVAL PAIN [None]
  - HYPOTENSION [None]
  - OSTEONECROSIS [None]
  - SCRATCH [None]
  - SYNCOPE [None]
